FAERS Safety Report 4704826-6 (Version None)
Quarter: 2005Q3

REPORT INFORMATION
  Report Type: 
  Country: None (occurrence: None)
  Receive Date: 20050701
  Receipt Date: 20050321
  Transmission Date: 20060218
  Serious: No
  Sender: FDA-Public Use
  Company Number: US-GLAXOSMITHKLINE-A0550628A

PATIENT
  Age: 62 Year
  Sex: Female

DRUGS (4)
  1. PARNATE [Suspect]
     Indication: DEPRESSION
     Dosage: 10MG TWICE PER DAY
     Route: 048
     Dates: start: 20050309
  2. LITHIUM [Concomitant]
  3. CLONAZEPAM [Concomitant]
  4. ZYPREXA [Concomitant]

REACTIONS (3)
  - BLOOD PRESSURE DECREASED [None]
  - DRY MOUTH [None]
  - LIBIDO DECREASED [None]
